FAERS Safety Report 4287055-2 (Version None)
Quarter: 2004Q1

REPORT INFORMATION
  Report Type: 
  Country: None (occurrence: None)
  Receive Date: 20040121
  Receipt Date: 20030701
  Transmission Date: 20041129
  Serious: Yes (Other)
  Sender: FDA-Public Use
  Company Number: A03200301482

PATIENT
  Age: 78 Year
  Sex: Female
  Weight: 88.905 kg

DRUGS (7)
  1. PLAVIX [Suspect]
     Indication: CHEST PAIN
     Dosage: 75 MG QD - ORAL
     Route: 048
     Dates: start: 20030623
  2. PLAVIX [Suspect]
     Indication: MYOCARDIAL ISCHAEMIA
     Dosage: 75 MG QD - ORAL
     Route: 048
     Dates: start: 20030623
  3. ACETYLSALICYLIC ACID SRT [Concomitant]
  4. ROSIGLITAZONE MALEATE [Concomitant]
  5. AMLODIPINE + BENAZEPRIL HYDROCHLORIDE COMBINATION [Concomitant]
  6. ESTROGENS CONJUGATED [Concomitant]
  7. ATORVASTATIN [Concomitant]

REACTIONS (2)
  - ANGINA PECTORIS [None]
  - DRUG INEFFECTIVE [None]
